FAERS Safety Report 20195710 (Version 3)
Quarter: 2025Q3

REPORT INFORMATION
  Report Type: Report from Study
  Country: EU (occurrence: EU)
  Receive Date: 20211216
  Receipt Date: 20250919
  Transmission Date: 20251020
  Serious: Yes (Other)
  Sender: MYLAN
  Company Number: EU-JNJFOC-20211053268

PATIENT
  Age: 66 Year
  Sex: Male

DRUGS (20)
  1. DEXAMETHASONE [Suspect]
     Active Substance: DEXAMETHASONE
     Indication: Plasma cell myeloma
     Dosage: 20 MILLIGRAM, QW, 0.5 WEEK, (2 DOSES/WEEK AND 2 WEEKS/CYCLE)
     Dates: end: 20180112
  2. DEXAMETHASONE [Suspect]
     Active Substance: DEXAMETHASONE
     Dosage: 20 MILLIGRAM, QW, 0.5 WEEK, (2 DOSES/WEEK AND 2 WEEKS/CYCLE)
     Route: 065
     Dates: end: 20180112
  3. DEXAMETHASONE [Suspect]
     Active Substance: DEXAMETHASONE
     Dosage: 20 MILLIGRAM, QW, 0.5 WEEK, (2 DOSES/WEEK AND 2 WEEKS/CYCLE)
     Route: 065
     Dates: end: 20180112
  4. DEXAMETHASONE [Suspect]
     Active Substance: DEXAMETHASONE
     Dosage: 20 MILLIGRAM, QW, 0.5 WEEK, (2 DOSES/WEEK AND 2 WEEKS/CYCLE)
     Dates: end: 20180112
  5. MELPHALAN [Suspect]
     Active Substance: MELPHALAN
     Indication: Plasma cell myeloma
  6. MELPHALAN [Suspect]
     Active Substance: MELPHALAN
     Route: 065
  7. MELPHALAN [Suspect]
     Active Substance: MELPHALAN
     Route: 065
  8. MELPHALAN [Suspect]
     Active Substance: MELPHALAN
  9. LENALIDOMIDE [Suspect]
     Active Substance: LENALIDOMIDE
     Indication: Plasma cell myeloma
     Dosage: 10 MILLIGRAMS, QW, 0.14 WEEK, (7 DOSES/WEEK AND 2 WEEKS/CYCLE)
     Dates: end: 20181201
  10. LENALIDOMIDE [Suspect]
     Active Substance: LENALIDOMIDE
     Dosage: 10 MILLIGRAMS, QW, 0.14 WEEK, (7 DOSES/WEEK AND 2 WEEKS/CYCLE)
     Dates: end: 20181201
  11. LENALIDOMIDE [Suspect]
     Active Substance: LENALIDOMIDE
     Dosage: 10 MILLIGRAMS, QW, 0.14 WEEK, (7 DOSES/WEEK AND 2 WEEKS/CYCLE)
     Route: 065
     Dates: end: 20181201
  12. LENALIDOMIDE [Suspect]
     Active Substance: LENALIDOMIDE
     Dosage: 10 MILLIGRAMS, QW, 0.14 WEEK, (7 DOSES/WEEK AND 2 WEEKS/CYCLE)
     Route: 065
     Dates: end: 20181201
  13. LENALIDOMIDE [Suspect]
     Active Substance: LENALIDOMIDE
  14. LENALIDOMIDE [Suspect]
     Active Substance: LENALIDOMIDE
  15. LENALIDOMIDE [Suspect]
     Active Substance: LENALIDOMIDE
     Route: 065
  16. LENALIDOMIDE [Suspect]
     Active Substance: LENALIDOMIDE
     Route: 065
  17. VELCADE [Suspect]
     Active Substance: BORTEZOMIB
     Indication: Plasma cell myeloma
     Dosage: 3 MILLIGRAMS, QW, 0.5 WEEK, (2 DOSES/WEEK AND 2 WEEKS/CYCLE)
     Dates: end: 20180112
  18. VELCADE [Suspect]
     Active Substance: BORTEZOMIB
     Dosage: 3 MILLIGRAMS, QW, 0.5 WEEK, (2 DOSES/WEEK AND 2 WEEKS/CYCLE)
     Route: 065
     Dates: end: 20180112
  19. VELCADE [Suspect]
     Active Substance: BORTEZOMIB
     Dosage: 3 MILLIGRAMS, QW, 0.5 WEEK, (2 DOSES/WEEK AND 2 WEEKS/CYCLE)
     Route: 065
     Dates: end: 20180112
  20. VELCADE [Suspect]
     Active Substance: BORTEZOMIB
     Dosage: 3 MILLIGRAMS, QW, 0.5 WEEK, (2 DOSES/WEEK AND 2 WEEKS/CYCLE)
     Dates: end: 20180112

REACTIONS (3)
  - Neuropathy peripheral [Unknown]
  - Off label use [Unknown]
  - Product use issue [Unknown]

NARRATIVE: CASE EVENT DATE: 20180112
